FAERS Safety Report 4598554-8 (Version None)
Quarter: 2005Q1

REPORT INFORMATION
  Report Type: 
  Country: None (occurrence: None)
  Receive Date: 20050304
  Receipt Date: 20050228
  Transmission Date: 20050727
  Serious: Yes (Hospitalization)
  Sender: FDA-Public Use
  Company Number: CM-MERCK-0503USA00025

PATIENT
  Age: 35 Year
  Sex: Male

DRUGS (1)
  1. STROMECTOL [Suspect]
     Route: 048
     Dates: start: 20050214, end: 20050214

REACTIONS (6)
  - ABASIA [None]
  - ANOREXIA [None]
  - BACK PAIN [None]
  - CONJUNCTIVAL HAEMORRHAGE [None]
  - HEADACHE [None]
  - PAIN [None]
